FAERS Safety Report 5356965-7 (Version None)
Quarter: 2007Q2

REPORT INFORMATION
  Report Type: 
  Country: None (occurrence: None)
  Receive Date: 20070614
  Receipt Date: 20070608
  Transmission Date: 20071010
  Serious: Yes (Hospitalization)
  Sender: FDA-Public Use
  Company Number: GB-BRISTOL-MYERS SQUIBB COMPANY-13808514

PATIENT
  Age: 52 Year
  Sex: Female

DRUGS (4)
  1. METHOTREXATE [Suspect]
     Indication: PSORIATIC ARTHROPATHY
  2. FOLIC ACID [Concomitant]
  3. LANSOPRAZOLE [Concomitant]
  4. INDOMETHACIN [Concomitant]

REACTIONS (1)
  - HEPATITIS E [None]
